FAERS Safety Report 7538017-0 (Version None)
Quarter: 2011Q2

REPORT INFORMATION
  Report Type: 
  Country: None (occurrence: None)
  Receive Date: 20110609
  Receipt Date: 20110608
  Transmission Date: 20111010
  Serious: Yes (Other)
  Sender: FDA-Public Use
  Company Number: US-PFIZER INC-2011125857

PATIENT
  Sex: Male
  Weight: 75.737 kg

DRUGS (4)
  1. GEODON [Suspect]
     Indication: AUTISM
     Dosage: 20 MG, 1X/DAY
     Route: 048
     Dates: start: 20110505
  2. GEODON [Suspect]
     Dosage: 20 MG, 2X/DAY
     Dates: start: 20110606
  3. ABILIFY [Concomitant]
     Dosage: UNK
  4. METHYLPHENIDATE [Concomitant]
     Dosage: UNK

REACTIONS (4)
  - DRUG INEFFECTIVE [None]
  - SOMNOLENCE [None]
  - FATIGUE [None]
  - DYSARTHRIA [None]
